FAERS Safety Report 9183688 (Version 1)
Quarter: 2013Q1

REPORT INFORMATION
  Report Type: Spontaneous
  Country: US (occurrence: US)
  Receive Date: 20130322
  Receipt Date: 20130322
  Transmission Date: 20140127
  Serious: No
  Sender: FDA-Public Use
  Company Number: US-BRISTOL-MYERS SQUIBB COMPANY-16581837

PATIENT
  Age: 54 Year
  Sex: Male

DRUGS (4)
  1. ERBITUX [Suspect]
     Indication: COLORECTAL CANCER
     Dates: start: 201204
  2. LOSARTAN [Concomitant]
  3. CIALIS [Concomitant]
  4. 5-FLUOROURACIL [Concomitant]

REACTIONS (7)
  - Diarrhoea [Recovered/Resolved]
  - Rash [Recovering/Resolving]
  - Acne [Recovering/Resolving]
  - Dry skin [Unknown]
  - Skin fissures [Unknown]
  - Ingrowing nail [Unknown]
  - Stomatitis [Unknown]
